FAERS Safety Report 7392101-3 (Version None)
Quarter: 2011Q2

REPORT INFORMATION
  Report Type: 
  Country: None (occurrence: None)
  Receive Date: 20110404
  Receipt Date: 20110329
  Transmission Date: 20111010
  Serious: Yes (Hospitalization)
  Sender: FDA-Public Use
  Company Number: A0773211A

PATIENT
  Age: 51 Year
  Sex: Female
  Weight: 122.7 kg

DRUGS (12)
  1. HUMULIN R [Concomitant]
  2. METOPROLOL [Concomitant]
  3. PLAVIX [Concomitant]
  4. LOTENSIN [Concomitant]
  5. GLUCOPHAGE [Concomitant]
  6. GLYBURIDE [Concomitant]
  7. LASIX [Concomitant]
  8. BLACK COHOSH [Concomitant]
  9. LIPITOR [Concomitant]
  10. AVANDIA [Suspect]
     Indication: DIABETES MELLITUS
     Dosage: 8MG PER DAY
     Route: 048
     Dates: start: 20030801, end: 20070501
  11. TOPROL-XL [Concomitant]
  12. PRAVACHOL [Concomitant]

REACTIONS (3)
  - MYOCARDIAL INFARCTION [None]
  - CORONARY ARTERY DISEASE [None]
  - CARDIAC FAILURE CONGESTIVE [None]
